FAERS Safety Report 13241849 (Version 1)
Quarter: 2017Q1

REPORT INFORMATION
  Report Type: Spontaneous
  Country: US (occurrence: US)
  Receive Date: 20170216
  Receipt Date: 20170216
  Transmission Date: 20170428
  Serious: No
  Sender: FDA-Public Use
  Company Number: US-RELYPSA-RLY2016004650

PATIENT
  Sex: Male

DRUGS (18)
  1. CO Q 10                            /00517201/ [Concomitant]
  2. ZYRTEC [Concomitant]
     Active Substance: CETIRIZINE HYDROCHLORIDE
  3. VESICARE [Concomitant]
     Active Substance: SOLIFENACIN SUCCINATE
  4. CEFDINIR. [Concomitant]
     Active Substance: CEFDINIR
  5. MULTIVITAMINS [Concomitant]
     Active Substance: VITAMINS
  6. ASPIRIN. [Concomitant]
     Active Substance: ASPIRIN
  7. BIOTIN [Concomitant]
     Active Substance: BIOTIN
  8. DYMISTA [Concomitant]
     Active Substance: AZELASTINE HYDROCHLORIDE\FLUTICASONE PROPIONATE
  9. NITROGLYCERIN. [Concomitant]
     Active Substance: NITROGLYCERIN
  10. TYLENOL SINUS SEVERE CONGESTION [Concomitant]
  11. ALPRAZOLAM. [Concomitant]
     Active Substance: ALPRAZOLAM
  12. LORTAB [Concomitant]
     Active Substance: ACETAMINOPHEN\HYDROCODONE BITARTRATE
  13. PRAVASTATIN SODIUM. [Concomitant]
     Active Substance: PRAVASTATIN SODIUM
  14. ACEBUTOLOL HCL [Concomitant]
     Active Substance: ACEBUTOLOL
  15. VELTASSA [Suspect]
     Active Substance: PATIROMER
     Indication: HYPERKALAEMIA
     Dosage: 8.4 G, QD
     Route: 048
     Dates: start: 20160315
  16. KALEXATE [Concomitant]
     Active Substance: SODIUM POLYSTYRENE SULFONATE
  17. ALLOPURINOL. [Concomitant]
     Active Substance: ALLOPURINOL
  18. LOSARTAN POTASSIUM. [Concomitant]
     Active Substance: LOSARTAN POTASSIUM

REACTIONS (1)
  - Drug dose omission [Not Recovered/Not Resolved]

NARRATIVE: CASE EVENT DATE: 2016
